FAERS Safety Report 8082138-3 (Version None)
Quarter: 2012Q1

REPORT INFORMATION
  Report Type: 
  Country: None (occurrence: None)
  Receive Date: 20120130
  Receipt Date: 20120124
  Transmission Date: 20120608
  Serious: Yes (Other)
  Sender: FDA-Public Use
  Company Number: US-ABBOTT-12P-163-0891603-00

PATIENT
  Age: 19 Year
  Sex: Female

DRUGS (3)
  1. LOESTRIN 1.5/30 [Concomitant]
     Indication: CONTRACEPTION
  2. HUMIRA [Suspect]
     Indication: CROHN'S DISEASE
     Dates: start: 20110501
  3. ZOLOFT [Concomitant]
     Indication: DEPRESSION

REACTIONS (2)
  - SYSTEMIC LUPUS ERYTHEMATOSUS [None]
  - TRANSAMINASES INCREASED [None]
